FAERS Safety Report 20136556 (Version 1)
Quarter: 2021Q4

REPORT INFORMATION
  Report Type: Spontaneous
  Country: US (occurrence: None)
  Receive Date: 20211201
  Receipt Date: 20211201
  Transmission Date: 20220303
  Serious: Yes (Hospitalization)
  Sender: FDA-Public Use
  Company Number: None

PATIENT
  Age: 65 Year
  Sex: Female
  Weight: 55.35 kg

DRUGS (2)
  1. FENTANYL [Suspect]
     Active Substance: FENTANYL
     Indication: Colonoscopy
  2. PROPOFOL [Suspect]
     Active Substance: PROPOFOL

REACTIONS (8)
  - Chills [None]
  - Muscle spasms [None]
  - Pyrexia [None]
  - Syncope [None]
  - Urinary tract infection [None]
  - Pain in extremity [None]
  - Thrombosis [None]
  - Sepsis [None]

NARRATIVE: CASE EVENT DATE: 20211116
